FAERS Safety Report 5417478-7 (Version None)
Quarter: 2007Q3

REPORT INFORMATION
  Report Type: 
  Country: None (occurrence: None)
  Receive Date: 20070816
  Receipt Date: 20070810
  Transmission Date: 20080115
  Serious: Yes (Death, Hospitalization, Disabling, Other)
  Sender: FDA-Public Use
  Company Number: US-TYCO HEALTHCARE/MALLINCKRODT-T200700715

PATIENT

DRUGS (10)
  1. OPTIMARK [Suspect]
     Indication: NUCLEAR MAGNETIC RESONANCE IMAGING BRAIN
     Dosage: 9 ML, SINGLE
     Dates: start: 20040514, end: 20040514
  2. PROHANCE [Suspect]
     Dates: start: 20040514, end: 20040514
  3. MULTIHANCE [Suspect]
     Dates: start: 20040514, end: 20040514
  4. OMNISCAN [Suspect]
     Dates: start: 20040514, end: 20040514
  5. MAGNEVIST [Suspect]
     Dates: start: 20040514, end: 20040514
  6. VINCRISTINE [Concomitant]
  7. ACTINOMYCIN D [Concomitant]
  8. CYCLOPHOSPHAMIDE [Concomitant]
  9. IFOSFAMIDE [Concomitant]
  10. ETOPOSIDE [Concomitant]

REACTIONS (1)
  - NEPHROGENIC SYSTEMIC FIBROSIS [None]
